FAERS Safety Report 4644203-X (Version None)
Quarter: 2005Q2

REPORT INFORMATION
  Report Type: 
  Country: None (occurrence: None)
  Receive Date: 20050331
  Receipt Date: 20050107
  Transmission Date: 20051028
  Serious: No
  Sender: FDA-Public Use
  Company Number: 05P-163-0285717-00

PATIENT
  Age: 63 Year
  Sex: Female
  Weight: 73.4827 kg

DRUGS (2)
  1. HUMIRA [Suspect]
     Indication: RHEUMATOID ARTHRITIS
     Dosage: 40 MG, 1 IN 2 WK, SUBCUTANEOUS
     Route: 058
     Dates: start: 20030101
  2. METHOTREXATE SODIUM [Concomitant]

REACTIONS (5)
  - ARTHRALGIA [None]
  - DRUG EFFECT DECREASED [None]
  - DYSKINESIA [None]
  - SHOULDER PAIN [None]
  - SWELLING [None]
